FAERS Safety Report 8956701 (Version 1)
Quarter: 2012Q4

REPORT INFORMATION
  Report Type: Spontaneous
  Country: JP (occurrence: None)
  Receive Date: 20121128
  Receipt Date: 20121128
  Transmission Date: 20130627
  Serious: Yes (Death, Other)
  Sender: FDA-Public Use
  Company Number: FK201203412

PATIENT
  Age: 10 Year
  Sex: Female
  Weight: 13.9 kg

DRUGS (2)
  1. METHYLPREDNISOLONE [Suspect]
     Route: 042
  2. TACROLIMUS [Concomitant]

REACTIONS (11)
  - Encephalopathy [None]
  - Renal failure acute [None]
  - Liver disorder [None]
  - Opportunistic infection [None]
  - Drug ineffective [None]
  - Transplant rejection [None]
  - Jaundice [None]
  - Brain oedema [None]
  - Encephalitis [None]
  - Aspergillosis [None]
  - Human herpesvirus 6 infection [None]
